FAERS Safety Report 15678783 (Version 1)
Quarter: 2018Q4

REPORT INFORMATION
  Report Type: Spontaneous
  Country: US (occurrence: US)
  Receive Date: 20181202
  Receipt Date: 20181202
  Transmission Date: 20190205
  Serious: Yes (Other)
  Sender: FDA-Public Use
  Company Number: US-TOLMAR, INC.-TOLG20180679

PATIENT

DRUGS (5)
  1. ACYCLOVIR. [Suspect]
     Active Substance: ACYCLOVIR
     Indication: ANTIVIRAL PROPHYLAXIS
     Dosage: 5 MG/KG
     Route: 042
  2. IMIQUIMOD. [Suspect]
     Active Substance: IMIQUIMOD
     Indication: GENITAL HERPES
     Dosage: UNKNOWN
     Route: 061
  3. ACYCLOVIR. [Suspect]
     Active Substance: ACYCLOVIR
     Indication: GENITAL HERPES
     Dosage: 5-10 MG/KG
     Route: 042
  4. FOSCARNET [Suspect]
     Active Substance: FOSCARNET
     Indication: GENITAL HERPES
     Dosage: 40 MG/KG/DOSE
     Route: 042
  5. CIDOFOVIR. [Suspect]
     Active Substance: CIDOFOVIR
     Indication: GENITAL HERPES
     Dosage: 1-3%
     Route: 061

REACTIONS (5)
  - Drug ineffective for unapproved indication [None]
  - Renal failure [Unknown]
  - Acute kidney injury [Unknown]
  - Product use in unapproved indication [None]
  - Pathogen resistance [Unknown]
